FAERS Safety Report 14228404 (Version 2)
Quarter: 2017Q4

REPORT INFORMATION
  Report Type: Report from Study
  Country: None (occurrence: US)
  Receive Date: 20171127
  Receipt Date: 20171213
  Transmission Date: 20180321
  Serious: Yes (Hospitalization)
  Sender: FDA-Public Use
  Company Number: US-ABBVIE-17P-163-2171427-00

PATIENT
  Age: 61 Year
  Sex: Male
  Weight: 108.51 kg

DRUGS (3)
  1. VENCLEXTA [Suspect]
     Active Substance: VENETOCLAX
     Route: 048
     Dates: start: 201707
  2. VENCLEXTA [Suspect]
     Active Substance: VENETOCLAX
     Indication: PLASMA CELL MYELOMA
     Route: 048
     Dates: start: 201510, end: 2016
  3. VENCLEXTA [Suspect]
     Active Substance: VENETOCLAX
     Route: 048

REACTIONS (10)
  - Off label use [Not Recovered/Not Resolved]
  - Urinary tract infection [Recovered/Resolved]
  - Platelet count decreased [Recovered/Resolved]
  - Drug ineffective [Unknown]
  - Infection [Not Recovered/Not Resolved]
  - Urinary tract infection [Not Recovered/Not Resolved]
  - Haemoglobin decreased [Recovered/Resolved]
  - Urinary tract infection [Recovered/Resolved]
  - Abdominal abscess [Recovered/Resolved]
  - Pyrexia [Recovered/Resolved]

NARRATIVE: CASE EVENT DATE: 2017
